FAERS Safety Report 8517184-6 (Version None)
Quarter: 2012Q3

REPORT INFORMATION
  Report Type: 
  Country: None (occurrence: None)
  Receive Date: 20120706
  Receipt Date: 20120620
  Transmission Date: 20120928
  Serious: Yes (Hospitalization)
  Sender: FDA-Public Use
  Company Number: TPA2012A03964

PATIENT
  Age: 50 Year
  Sex: Male

DRUGS (1)
  1. EDARBYCLOR [Suspect]

REACTIONS (1)
  - RENAL FAILURE [None]
